FAERS Safety Report 5271603-X (Version None)
Quarter: 2007Q1

REPORT INFORMATION
  Report Type: 
  Country: None (occurrence: None)
  Receive Date: 20070316
  Receipt Date: 20070308
  Transmission Date: 20070707
  Serious: Yes (Other)
  Sender: FDA-Public Use
  Company Number: 163-21880-06110738

PATIENT
  Age: 74 Year
  Sex: Female

DRUGS (6)
  1. REVLIMID [Suspect]
     Indication: MULTIPLE MYELOMA
     Dosage: SEE IMAGE
     Route: 048
     Dates: start: 20061024, end: 20061101
  2. REVLIMID [Suspect]
     Indication: MULTIPLE MYELOMA
     Dosage: SEE IMAGE
     Route: 048
     Dates: start: 20061201, end: 20070201
  3. COUMADIN [Concomitant]
  4. NEURONTIN [Concomitant]
  5. PREMARIN [Concomitant]
  6. ZOMETA [Concomitant]

REACTIONS (4)
  - BREAST CANCER FEMALE [None]
  - CATHETER RELATED COMPLICATION [None]
  - RASH GENERALISED [None]
  - THROMBOSIS [None]
